FAERS Safety Report 9331047 (Version 3)
Quarter: 2014Q2

REPORT INFORMATION
  Report Type: Spontaneous
  Country: IT (occurrence: IT)
  Receive Date: 20130605
  Receipt Date: 20140530
  Transmission Date: 20141212
  Serious: Yes (Hospitalization)
  Sender: FDA-Public Use
  Company Number: IT-BRISTOL-MYERS SQUIBB COMPANY-18964932

PATIENT
  Age: 81 Year
  Sex: Male

DRUGS (8)
  1. COUMADIN TABS 5 MG [Suspect]
     Indication: ATRIAL FIBRILLATION
     Route: 048
     Dates: start: 20120101, end: 20130525
  2. LANSOPRAZOLE [Concomitant]
     Route: 048
  3. ALLOPURINOL [Concomitant]
     Route: 048
  4. ALDACTONE [Concomitant]
     Dosage: 25 MG CAPS, 1DF= 1 UNIT
     Route: 048
  5. DOSTINEX [Concomitant]
     Dosage: 0.5 MG TAB
     Route: 048
  6. DIBASE [Concomitant]
     Dosage: 25.000 IU/2.5ML ORAL SOLUTION
     Route: 048
  7. EUTIROX [Concomitant]
     Dosage: 1DF=1 DOSAGE UNIT, 25 MCG TAB
     Route: 048
  8. LASIX [Concomitant]
     Dosage: 1DF=1 UNIT, 25 MG TAB
     Route: 048

REACTIONS (4)
  - Convulsion [Recovering/Resolving]
  - Intracranial tumour haemorrhage [Recovering/Resolving]
  - Muscle spasms [Recovering/Resolving]
  - Tongue biting [Recovering/Resolving]
